FAERS Safety Report 6696550-8 (Version None)
Quarter: 2010Q2

REPORT INFORMATION
  Report Type: 
  Country: None (occurrence: None)
  Receive Date: 20100421
  Receipt Date: 20090923
  Transmission Date: 20101027
  Serious: No
  Sender: FDA-Public Use
  Company Number: US-000032

PATIENT
  Sex: Female
  Weight: 104.3273 kg

DRUGS (4)
  1. KUVAN [Suspect]
     Indication: PHENYLKETONURIA
     Dosage: (2000 MG QD ORAL)
     Route: 048
     Dates: start: 20081001, end: 20090801
  2. LEXAPRO [Concomitant]
  3. GLUCOPHAGE [Concomitant]
  4. ORAL CONTRACEPTIVES NOS [Concomitant]

REACTIONS (2)
  - NAUSEA [None]
  - VOMITING [None]
